FAERS Safety Report 7342969-1 (Version None)
Quarter: 2011Q1

REPORT INFORMATION
  Report Type: 
  Country: None (occurrence: None)
  Receive Date: 20110310
  Receipt Date: 20110225
  Transmission Date: 20110831
  Serious: Yes (Other)
  Sender: FDA-Public Use
  Company Number: PHHY2011BE02373

PATIENT
  Age: 44 Year
  Sex: Female

DRUGS (10)
  1. ACLASTA [Suspect]
     Indication: OSTEOPOROSIS
     Dosage: 4 MG,
     Dates: start: 20101101
  2. VITAMIN D [Concomitant]
  3. MEDROL [Concomitant]
     Indication: LUPUS NEPHRITIS
  4. STATIN [Concomitant]
     Indication: HYPERCHOLESTEROLAEMIA
  5. ZESTRIL [Concomitant]
     Indication: HYPERTENSION
  6. TERRA-CORTRIL [Concomitant]
  7. PREDNISOLONE [Concomitant]
  8. DIFLUCAN [Concomitant]
  9. CALCIUM [Concomitant]
  10. GLUCAGON [Concomitant]
     Indication: TYPE 2 DIABETES MELLITUS

REACTIONS (4)
  - EYE INFLAMMATION [None]
  - OCULAR HYPERAEMIA [None]
  - BLEPHARITIS [None]
  - SYSTEMIC LUPUS ERYTHEMATOSUS [None]
